FAERS Safety Report 8248069-0 (Version None)
Quarter: 2012Q1

REPORT INFORMATION
  Report Type: 
  Country: None (occurrence: None)
  Receive Date: 20120330
  Receipt Date: 20120326
  Transmission Date: 20120608
  Serious: Yes (Life-Threatening, Other)
  Sender: FDA-Public Use
  Company Number: GR-JNJFOC-20120311280

PATIENT
  Age: 46 Year
  Sex: Female
  Weight: 70 kg

DRUGS (10)
  1. TRAMADOL HCL [Interacting]
     Indication: ANALGESIC THERAPY
     Route: 042
  2. PARECOXIB SODIUM [Concomitant]
     Indication: ANALGESIC THERAPY
     Route: 065
  3. SEVOFLURANE [Suspect]
     Indication: ANAESTHESIA
     Route: 065
  4. ACETAMINOPHEN [Concomitant]
     Indication: ANALGESIC THERAPY
     Route: 065
  5. FENTANYL CITRATE [Suspect]
     Indication: ANAESTHESIA
     Route: 065
  6. PROPOFOL [Suspect]
     Indication: ANAESTHESIA
     Route: 065
  7. RANITIDINE [Concomitant]
     Route: 065
  8. MIDAZOLAM [Concomitant]
     Route: 065
  9. METOCLOPRAMIDE [Concomitant]
     Route: 065
  10. ONDANSETRON [Concomitant]
     Route: 065

REACTIONS (5)
  - MYDRIASIS [None]
  - APNOEA [None]
  - DEPRESSED LEVEL OF CONSCIOUSNESS [None]
  - PAIN [None]
  - DRUG INTERACTION [None]
